FAERS Safety Report 8037674-2 (Version None)
Quarter: 2012Q1

REPORT INFORMATION
  Report Type: 
  Country: None (occurrence: None)
  Receive Date: 20120111
  Receipt Date: 20111227
  Transmission Date: 20120608
  Serious: Yes (Hospitalization)
  Sender: FDA-Public Use
  Company Number: JP-ABBOTT-11P-087-0857769-00

PATIENT
  Sex: Male
  Weight: 50 kg

DRUGS (16)
  1. PREDNISOLONE [Suspect]
     Dates: start: 20110204
  2. LOPERAMIDE HCL [Concomitant]
     Indication: CROHN'S DISEASE
     Route: 048
     Dates: start: 20110107, end: 20110205
  3. PREDNISOLONE [Suspect]
     Indication: CROHN'S DISEASE
     Dates: start: 20110121
  4. PREDNISOLONE [Suspect]
     Dates: start: 20110216
  5. PREDNISOLONE [Suspect]
     Dates: start: 20110314
  6. HUMIRA [Suspect]
     Indication: CROHN'S DISEASE
     Route: 058
     Dates: start: 20101028, end: 20101028
  7. HUMIRA [Suspect]
     Dates: start: 20101111, end: 20101111
  8. HUMIRA [Suspect]
     Dates: start: 20110127, end: 20110203
  9. SULFAMETHOXAZOLE AND TRIMETHOPRIM [Concomitant]
     Indication: INFECTION PROPHYLAXIS
     Route: 048
     Dates: start: 20110201, end: 20110220
  10. HUMIRA [Suspect]
     Dates: start: 20101125, end: 20110120
  11. PREDNISOLONE [Suspect]
     Dates: start: 20110211
  12. FOLIC ACID [Concomitant]
     Indication: PRODUCT USED FOR UNKNOWN INDICATION
     Route: 048
  13. FAMOTIDINE [Concomitant]
     Indication: GASTROINTESTINAL DISORDER
     Route: 048
  14. HUMIRA [Suspect]
     Dates: start: 20110316
  15. IMURAN [Suspect]
     Indication: CROHN'S DISEASE
     Route: 048
     Dates: end: 20110212
  16. PREDNISOLONE [Suspect]
     Dates: start: 20110301

REACTIONS (5)
  - ANAEMIA [None]
  - DERMATITIS BULLOUS [None]
  - BACK PAIN [None]
  - HERPES ZOSTER [None]
  - CROHN'S DISEASE [None]
